FAERS Safety Report 5446401-4 (Version None)
Quarter: 2007Q3

REPORT INFORMATION
  Report Type: 
  Country: None (occurrence: None)
  Receive Date: 20070907
  Receipt Date: 20070829
  Transmission Date: 20080115
  Serious: Yes (Other)
  Sender: FDA-Public Use
  Company Number: FR-ROCHE-514803

PATIENT
  Age: 70 Year
  Sex: Female

DRUGS (2)
  1. BONIVA [Suspect]
     Indication: OSTEOPOROSIS
     Route: 065
     Dates: start: 20070401
  2. FLECAINIDE ACETATE [Concomitant]
     Dosage: REPORTED AS FLECAINE LP.

REACTIONS (2)
  - HYPOACUSIS [None]
  - VISUAL ACUITY REDUCED [None]
